FAERS Safety Report 17751946 (Version 2)
Quarter: 2020Q2

REPORT INFORMATION
  Report Type: Spontaneous
  Country: US (occurrence: US)
  Receive Date: 20200506
  Receipt Date: 20200615
  Transmission Date: 20200714
  Serious: Yes (Other)
  Sender: FDA-Public Use
  Company Number: US-ELI_LILLY_AND_COMPANY-US202004010404

PATIENT
  Sex: Female

DRUGS (2)
  1. TRULICITY [Suspect]
     Active Substance: DULAGLUTIDE
     Dosage: 0.75 MG, UNKNOWN
     Route: 065
  2. TRULICITY [Suspect]
     Active Substance: DULAGLUTIDE
     Indication: AUTONOMIC NERVOUS SYSTEM IMBALANCE
     Dosage: 1.5 MG, UNKNOWN
     Route: 065
     Dates: start: 2019

REACTIONS (7)
  - Tremor [Unknown]
  - Blood glucose decreased [Unknown]
  - Off label use [Unknown]
  - Cystitis [Unknown]
  - Migraine [Unknown]
  - Loss of consciousness [Unknown]
  - Fibromyalgia [Unknown]

NARRATIVE: CASE EVENT DATE: 2019
